FAERS Safety Report 9193397 (Version 4)
Quarter: 2014Q1

REPORT INFORMATION
  Report Type: Report from Study
  Country: GB (occurrence: GB)
  Receive Date: 20130327
  Receipt Date: 20140116
  Transmission Date: 20141002
  Serious: Yes (Death, Other)
  Sender: FDA-Public Use
  Company Number: GB-ROCHE-1204036

PATIENT
  Age: 85 Year
  Sex: Male

DRUGS (30)
  1. RANIBIZUMAB [Suspect]
     Indication: AGE-RELATED MACULAR DEGENERATION
     Dosage: LAST DOSE PRIOR TO THE SAE:08/OCT/2012
     Route: 050
     Dates: start: 20090720
  2. RANIBIZUMAB [Suspect]
     Route: 050
     Dates: start: 20121008
  3. SIMVASTATIN [Concomitant]
     Route: 065
     Dates: start: 2002
  4. SIMVASTATIN [Concomitant]
     Route: 065
     Dates: start: 20130130
  5. SIMVASTATIN [Concomitant]
     Route: 065
     Dates: start: 20130201, end: 20130203
  6. FINASTERIDE [Concomitant]
     Route: 065
     Dates: start: 2009
  7. FINASTERIDE [Concomitant]
     Route: 065
     Dates: start: 20130130
  8. BISOPROLOL [Concomitant]
     Route: 065
     Dates: start: 1999
  9. BISOPROLOL [Concomitant]
     Route: 065
     Dates: start: 20130130
  10. BISOPROLOL [Concomitant]
     Route: 065
     Dates: start: 20130203, end: 20130203
  11. ASPIRIN [Concomitant]
     Route: 065
     Dates: start: 1999
  12. ASPIRIN [Concomitant]
     Route: 065
     Dates: start: 20130130
  13. ASPIRIN [Concomitant]
     Route: 065
     Dates: start: 20130203, end: 20130203
  14. MAGNESIUM SULPHATE [Concomitant]
     Route: 065
     Dates: start: 20130131, end: 20130131
  15. MAGNESIUM SULPHATE [Concomitant]
     Route: 065
     Dates: start: 20130203, end: 20130203
  16. MAGNESIUM SULPHATE [Concomitant]
     Route: 065
     Dates: start: 20130203, end: 20130203
  17. NORADRENALINE [Concomitant]
     Route: 065
     Dates: start: 20130131
  18. PROPOFOL [Concomitant]
     Route: 065
     Dates: start: 20130131, end: 20130202
  19. ALFENTANIL [Concomitant]
     Route: 065
     Dates: start: 20130131, end: 20130202
  20. FUROSEMIDE [Concomitant]
     Route: 065
     Dates: start: 20130201, end: 20130201
  21. FUROSEMIDE [Concomitant]
     Route: 065
     Dates: start: 20130203, end: 20130203
  22. DEXTROSE [Concomitant]
     Route: 065
     Dates: start: 20130201, end: 20130201
  23. RANITIDINE [Concomitant]
     Route: 065
     Dates: start: 20130201
  24. HYDROCORTISONE [Concomitant]
     Route: 065
     Dates: start: 20130201, end: 20130203
  25. ONDASEPROL [Concomitant]
     Route: 065
     Dates: start: 20130203
  26. METOCLOPRAMIDE HYDROCHLORIDE [Concomitant]
     Route: 065
     Dates: start: 20130203
  27. SALBUTAMOL [Concomitant]
     Route: 065
     Dates: start: 20130202
  28. HEPARIN [Concomitant]
     Route: 065
     Dates: start: 20130201, end: 20130201
  29. SODIUM BICARBONATE [Concomitant]
     Route: 065
     Dates: start: 20130201, end: 20130201
  30. ARGININE [Concomitant]
     Route: 065
     Dates: start: 20130202, end: 20130202

REACTIONS (39)
  - Multi-organ failure [Fatal]
  - Aortic aneurysm rupture [Fatal]
  - Activated partial thromboplastin time prolonged [Fatal]
  - PO2 increased [Fatal]
  - Oxygen saturation decreased [Fatal]
  - White blood cell count increased [Fatal]
  - Haemoglobin decreased [Fatal]
  - C-reactive protein increased [Fatal]
  - PO2 decreased [Fatal]
  - Blood urea increased [Fatal]
  - International normalised ratio increased [Fatal]
  - Carboxyhaemoglobin increased [Fatal]
  - Blood creatinine increased [Fatal]
  - Blood magnesium decreased [Fatal]
  - Haematocrit decreased [Fatal]
  - Blood pH decreased [Fatal]
  - Oxygen saturation increased [Fatal]
  - Blood methaemoglobin [Fatal]
  - Blood potassium increased [Fatal]
  - Calcium ionised decreased [Fatal]
  - Calcium ionised increased [Fatal]
  - Blood chloride increased [Fatal]
  - Anion gap decreased [Fatal]
  - Anion gap increased [Fatal]
  - Blood lactic acid increased [Fatal]
  - Base excess increased [Fatal]
  - Base excess decreased [Fatal]
  - Blood bicarbonate increased [Fatal]
  - Blood bicarbonate decreased [Fatal]
  - PCO2 increased [Fatal]
  - Neutrophil count increased [Fatal]
  - Lymphocyte count decreased [Fatal]
  - Lymphocyte count increased [Fatal]
  - Monocyte count increased [Fatal]
  - Eosinophil count increased [Fatal]
  - Platelet count decreased [Fatal]
  - Blood albumin decreased [Fatal]
  - Alanine aminotransferase increased [Fatal]
  - Blood phosphorus decreased [Fatal]
